FAERS Safety Report 5391724-0 (Version None)
Quarter: 2007Q3

REPORT INFORMATION
  Report Type: 
  Country: None (occurrence: None)
  Receive Date: 20070717
  Receipt Date: 20070710
  Transmission Date: 20080115
  Serious: Yes (Death, Disabling, Other)
  Sender: FDA-Public Use
  Company Number: US020209

PATIENT
  Age: 73 Year
  Sex: Male

DRUGS (10)
  1. TRISENOX [Suspect]
     Indication: ACUTE PROMYELOCYTIC LEUKAEMIA
     Dosage: 9 MG QD INTRAVENOUS DRIP
     Route: 041
     Dates: start: 20070423, end: 20070423
  2. CYTARABINE [Suspect]
     Dosage: 40 MG QD INTRATHECAL
     Route: 037
     Dates: start: 20070421, end: 20070421
  3. METHOTREXATE [Suspect]
     Dosage: 15 MG QD INTRATHECAL
     Route: 037
     Dates: start: 20070421, end: 20070421
  4. ARBEKACIN SULFATE [Suspect]
     Dosage: 100 MG QD INTRAVENOUS DRIP
     Route: 041
     Dates: start: 20070413, end: 20070417
  5. ARBEKACIN SULFATE [Suspect]
     Dosage: 300 MG QD INTRAVENOUS DRIP
     Route: 041
     Dates: start: 20070418, end: 20070422
  6. ARBEKACIN SULFATE [Suspect]
     Dosage: 150 MG QD INTRAVENOUS DRIP
     Route: 041
     Dates: start: 20070423, end: 20070506
  7. PREDNISOLONE SODIUM SUCCINATE INJ [Concomitant]
  8. NEFAMOSTAT [Concomitant]
  9. LENOGRASTIM [Concomitant]
  10. POTASSIUM CHLORIDE [Concomitant]

REACTIONS (8)
  - BLOOD PRESSURE SYSTOLIC DECREASED [None]
  - BONE MARROW FAILURE [None]
  - C-REACTIVE PROTEIN INCREASED [None]
  - PLEURAL EFFUSION [None]
  - RASH [None]
  - RESPIRATORY ARREST [None]
  - RESUSCITATION [None]
  - URINE OUTPUT DECREASED [None]
